FAERS Safety Report 7791699-0 (Version None)
Quarter: 2011Q3

REPORT INFORMATION
  Report Type: 
  Country: None (occurrence: None)
  Receive Date: 20110930
  Receipt Date: 20110930
  Transmission Date: 20111222
  Serious: Yes (Other)
  Sender: FDA-Public Use
  Company Number: None

PATIENT
  Age: 18 Year
  Sex: Female
  Weight: 47.6 kg

DRUGS (1)
  1. TAPENDATOL [Suspect]
     Dosage: 100 TO 600MG ORAL
     Route: 048

REACTIONS (3)
  - CROHN'S DISEASE [None]
  - GRAND MAL CONVULSION [None]
  - CONDITION AGGRAVATED [None]
